FAERS Safety Report 16699865 (Version 1)
Quarter: 2019Q3

REPORT INFORMATION
  Report Type: Report from Study
  Country: US (occurrence: US)
  Receive Date: 20190813
  Receipt Date: 20190813
  Transmission Date: 20191004
  Serious: Yes (Hospitalization)
  Sender: FDA-Public Use
  Company Number: PHEH2019US032669

PATIENT
  Sex: Female
  Weight: 46.71 kg

DRUGS (2)
  1. TREPROSTINIL. [Suspect]
     Active Substance: TREPROSTINIL
     Indication: PULMONARY ARTERIAL HYPERTENSION
     Dosage: 91NG/KG/MIN, CONTINUOUS
     Route: 042
     Dates: start: 20190605
  2. ADCIRCA [Concomitant]
     Active Substance: TADALAFIL
     Indication: PULMONARY ARTERIAL HYPERTENSION
     Route: 065

REACTIONS (4)
  - Dyspnoea [Unknown]
  - Pulmonary hypertension [Unknown]
  - Pulmonary oedema [Unknown]
  - Ascites [Unknown]
